FAERS Safety Report 16766483 (Version 1)
Quarter: 2019Q3

REPORT INFORMATION
  Report Type: Report from Study
  Country: None (occurrence: US)
  Receive Date: 20190903
  Receipt Date: 20190903
  Transmission Date: 20191005
  Serious: Yes (Other)
  Sender: FDA-Public Use
  Company Number: US-ABBVIE-18K-163-2579416-00

PATIENT
  Age: 62 Year
  Sex: Female

DRUGS (2)
  1. HUMIRA [Suspect]
     Active Substance: ADALIMUMAB
     Indication: RHEUMATOID ARTHRITIS
     Route: 058
     Dates: start: 20181109
  2. HUMIRA [Suspect]
     Active Substance: ADALIMUMAB
     Dosage: CITRATE FREE
     Route: 058
     Dates: start: 20190206

REACTIONS (19)
  - Impaired work ability [Unknown]
  - Depression [Unknown]
  - Cold urticaria [Unknown]
  - Mobility decreased [Unknown]
  - Gait disturbance [Unknown]
  - Joint stiffness [Not Recovered/Not Resolved]
  - Sinus congestion [Unknown]
  - Injection site pruritus [Recovering/Resolving]
  - Pruritus [Recovered/Resolved]
  - Loss of personal independence in daily activities [Unknown]
  - Contusion [Unknown]
  - Arthralgia [Not Recovered/Not Resolved]
  - Impaired self-care [Unknown]
  - Joint swelling [Unknown]
  - Sensitivity to weather change [Unknown]
  - Fall [Unknown]
  - Loss of consciousness [Unknown]
  - Arthralgia [Recovering/Resolving]
  - Headache [Recovered/Resolved]

NARRATIVE: CASE EVENT DATE: 2018
